FAERS Safety Report 14947759 (Version 1)
Quarter: 2018Q2

REPORT INFORMATION
  Report Type: Spontaneous
  Country: IT (occurrence: IT)
  Receive Date: 20180529
  Receipt Date: 20180529
  Transmission Date: 20180711
  Serious: Yes (Hospitalization, Other)
  Sender: FDA-Public Use
  Company Number: IT-009507513-1805ITA011326

PATIENT
  Age: 43 Year
  Sex: Male

DRUGS (6)
  1. BETAMETHASONE. [Interacting]
     Active Substance: BETAMETHASONE
     Indication: PERIARTHRITIS
     Dosage: UNK
     Route: 030
     Dates: start: 201710, end: 201712
  2. GENVOYA [Interacting]
     Active Substance: COBICISTAT\ELVITEGRAVIR\EMTRICITABINE\TENOFOVIR ALAFENAMIDE FUMARATE
     Indication: HIV INFECTION
     Dosage: UNK
     Route: 065
     Dates: start: 201702, end: 201801
  3. METHYLPREDNISOLONE. [Interacting]
     Active Substance: METHYLPREDNISOLONE
     Indication: PERIARTHRITIS
     Dosage: UNK
     Route: 030
     Dates: start: 201710, end: 201712
  4. CORTONE ACETATO [Concomitant]
     Active Substance: CORTISONE ACETATE
  5. MOMETASONE FUROATE. [Suspect]
     Active Substance: MOMETASONE FUROATE
     Indication: PERIARTHRITIS
     Dosage: UNK
     Route: 045
     Dates: start: 201710, end: 201712
  6. BETAMETHASONE. [Interacting]
     Active Substance: BETAMETHASONE
     Dosage: UNK
     Route: 048
     Dates: start: 201710, end: 201712

REACTIONS (3)
  - Periarthritis [Recovering/Resolving]
  - Drug interaction [Recovering/Resolving]
  - Glucocorticoid deficiency [Recovering/Resolving]

NARRATIVE: CASE EVENT DATE: 201710
